FAERS Safety Report 4266108-9 (Version None)
Quarter: 2004Q1

REPORT INFORMATION
  Report Type: 
  Country: None (occurrence: None)
  Receive Date: 20040106
  Receipt Date: 20031227
  Transmission Date: 20041129
  Serious: Yes (Death)
  Sender: FDA-Public Use
  Company Number: 163-20785-03080633

PATIENT
  Age: 83 Year
  Sex: Female

DRUGS (8)
  1. THALOMID [Suspect]
     Indication: METASTATIC MALIGNANT MELANOMA
     Dosage: 100 MG, QHS, ORAL
     Route: 048
     Dates: start: 20030701, end: 20030715
  2. TEMOZOLOMIDE (TEMOZOLOMIDE) [Concomitant]
  3. OXYCONTIN [Concomitant]
  4. SYNTHROID [Concomitant]
  5. COMPAZINE [Concomitant]
  6. KYTRIL [Concomitant]
  7. SENOKOT [Concomitant]
  8. COLACE (DOCUSATE SODIUM) [Concomitant]

REACTIONS (6)
  - DRUG RESISTANCE [None]
  - MALIGNANT NEOPLASM PROGRESSION [None]
  - METASTASES TO LIVER [None]
  - METASTASES TO SKIN [None]
  - METASTATIC MALIGNANT MELANOMA [None]
  - NAUSEA [None]
